FAERS Safety Report 5951142-0 (Version None)
Quarter: 2008Q4

REPORT INFORMATION
  Report Type: 
  Country: None (occurrence: None)
  Receive Date: 20081113
  Receipt Date: 20081031
  Transmission Date: 20090506
  Serious: No
  Sender: FDA-Public Use
  Company Number: US-BAYER-200837289NA

PATIENT
  Age: 50 Year
  Sex: Female
  Weight: 91 kg

DRUGS (2)
  1. MAGNEVIST [Suspect]
     Indication: NUCLEAR MAGNETIC RESONANCE IMAGING BRAIN
     Dosage: TOTAL DAILY DOSE: 20 ML
     Route: 042
     Dates: start: 20081030, end: 20081030
  2. DIAZEPAM [Concomitant]

REACTIONS (4)
  - DYSPHAGIA [None]
  - HEADACHE [None]
  - NAUSEA [None]
  - THROAT TIGHTNESS [None]
